FAERS Safety Report 21606232 (Version 1)
Quarter: 2022Q4

REPORT INFORMATION
  Report Type: Spontaneous
  Country: US (occurrence: US)
  Receive Date: 20221117
  Receipt Date: 20221117
  Transmission Date: 20230112
  Serious: No
  Sender: FDA-Public Use
  Company Number: US-BRISTOL-MYERS SQUIBB COMPANY-2022-083935

PATIENT
  Age: 78 Year
  Sex: Male
  Weight: 85.9 kg

DRUGS (1)
  1. ORENCIA [Suspect]
     Active Substance: ABATACEPT
     Indication: Rheumatoid arthritis
     Dosage: DOSE : UNAVAILABLE;     FREQ : EVERY FOUR WEEKS
     Route: 042
     Dates: start: 201904

REACTIONS (1)
  - Intentional product use issue [Unknown]
